FAERS Safety Report 6553528-2 (Version None)
Quarter: 2010Q1

REPORT INFORMATION
  Report Type: 
  Country: None (occurrence: None)
  Receive Date: 20100127
  Receipt Date: 20100119
  Transmission Date: 20100710
  Serious: Yes (Other)
  Sender: FDA-Public Use
  Company Number: US-ROCHE-680374

PATIENT
  Age: 65 Year
  Sex: Female

DRUGS (2)
  1. BONIVA [Suspect]
     Indication: BEDRIDDEN
     Route: 048
     Dates: start: 20080901, end: 20090501
  2. BONIVA [Suspect]
     Route: 048

REACTIONS (8)
  - DIARRHOEA [None]
  - DYSPHAGIA [None]
  - NECK PAIN [None]
  - OROPHARYNGEAL BLISTERING [None]
  - PAIN IN EXTREMITY [None]
  - SEPSIS [None]
  - SWOLLEN TONGUE [None]
  - WEIGHT DECREASED [None]
